FAERS Safety Report 8603299-0 (Version None)
Quarter: 2012Q3

REPORT INFORMATION
  Report Type: 
  Country: None (occurrence: None)
  Receive Date: 20120817
  Receipt Date: 20070829
  Transmission Date: 20120928
  Serious: Yes (Other)
  Sender: FDA-Public Use
  Company Number: CO-PFIZER INC-2012201025

PATIENT
  Age: 70 Year
  Sex: Female

DRUGS (5)
  1. GLIBENCLAMIDE [Concomitant]
     Dosage: 5 MG, 1X/DAY
  2. METFORMIN [Concomitant]
     Dosage: 850 MG, 1X/DAY
  3. NIFEDIPINE [Concomitant]
     Dosage: 30 MG, 1X/DAY
  4. LIPITOR [Suspect]
     Indication: DYSLIPIDAEMIA
     Dosage: 10 MG, 1X/DAY
  5. QUINAPRIL AND HYDROCHLOROTHIAZIDE [Suspect]
     Indication: HYPERTENSION
     Dosage: QUINAPRIL/HYDROCHLOROTHIAZIDE 20/12.5 MG, 1X/DAY

REACTIONS (2)
  - DYSPNOEA PAROXYSMAL NOCTURNAL [None]
  - TOBACCO ABUSE [None]
